FAERS Safety Report 6066062-3 (Version None)
Quarter: 2009Q1

REPORT INFORMATION
  Report Type: 
  Country: None (occurrence: None)
  Receive Date: 20090130
  Receipt Date: 20090119
  Transmission Date: 20090719
  Serious: Yes (Hospitalization)
  Sender: FDA-Public Use
  Company Number: FR-1168451

PATIENT
  Age: 87 Year
  Sex: Female

DRUGS (9)
  1. TOBRADEX [Suspect]
     Dosage: OPHTHALMIC
     Route: 047
     Dates: start: 20081014
  2. ADRENALINE RENAUDIN (EPINEPHRINE) [Concomitant]
  3. CARBOCAINE [Concomitant]
  4. NEOSYNEPHRINE (PHENYLEPHRINE HYDROCHLORIDE) [Concomitant]
  5. PILOCARPINE (PILOCARPINE HYDROCHLORIDE) [Concomitant]
  6. STERDEX (STER-DEX) [Concomitant]
  7. TETRACAINE (TETRACAINE) [Concomitant]
  8. TROPICAMIDE [Concomitant]
  9. OCUFEN [Concomitant]

REACTIONS (6)
  - CATARACT OPERATION COMPLICATION [None]
  - EYE INFECTION INTRAOCULAR [None]
  - POST PROCEDURAL COMPLICATION [None]
  - POSTERIOR CAPSULE RUPTURE [None]
  - UVEITIS [None]
  - VITRITIS [None]
